FAERS Safety Report 5908895-7 (Version None)
Quarter: 2008Q4

REPORT INFORMATION
  Report Type: 
  Country: None (occurrence: None)
  Receive Date: 20081006
  Receipt Date: 20080930
  Transmission Date: 20090506
  Serious: Yes (Hospitalization, Other)
  Sender: FDA-Public Use
  Company Number: JP-ABBOTT-08P-087-0473420-00

PATIENT
  Sex: Female
  Weight: 41 kg

DRUGS (12)
  1. CLARITHROMYCIN [Suspect]
     Indication: INTERSTITIAL LUNG DISEASE
     Route: 048
     Dates: start: 20080507, end: 20080820
  2. CLARITHROMYCIN [Suspect]
     Indication: INFECTION
  3. CLARITHROMYCIN [Suspect]
     Indication: CHRONIC RESPIRATORY DISEASE
  4. HUSCODE [Suspect]
     Indication: COUGH
     Route: 048
     Dates: start: 20071112, end: 20080722
  5. CILNIDIPINE [Suspect]
     Indication: HYPERTENSION
     Route: 048
     Dates: start: 20071112, end: 20080720
  6. SARPOGRELATE HYDROCHLORIDE [Suspect]
     Indication: ARTERIOSCLEROSIS OBLITERANS
     Route: 048
     Dates: start: 20071112, end: 20080722
  7. EMPYNASE [Suspect]
     Indication: COUGH
     Route: 048
     Dates: start: 20071112
  8. EMPYNASE [Suspect]
     Indication: PRODUCTIVE COUGH
  9. L-CARBOCISTEINE [Concomitant]
     Indication: COUGH
     Route: 048
     Dates: start: 20071112
  10. L-CARBOCISTEINE [Concomitant]
     Indication: PRODUCTIVE COUGH
  11. TULOBUTEROL [Concomitant]
     Indication: COUGH
     Route: 062
     Dates: start: 20071112
  12. TULOBUTEROL [Concomitant]
     Indication: PRODUCTIVE COUGH

REACTIONS (2)
  - ANAEMIA [None]
  - GASTRIC ULCER [None]
